FAERS Safety Report 14446906 (Version 1)
Quarter: 2018Q1

REPORT INFORMATION
  Report Type: Report from Study
  Country: US (occurrence: US)
  Receive Date: 20180126
  Receipt Date: 20180126
  Transmission Date: 20180509
  Serious: Yes (Death, Hospitalization, Other)
  Sender: FDA-Public Use
  Company Number: US-PFIZER INC-2018028522

PATIENT
  Age: 73 Year
  Sex: Female
  Weight: 42.63 kg

DRUGS (7)
  1. HUMIRA [Suspect]
     Active Substance: ADALIMUMAB
     Dosage: 160 MG, UNK (1 IN 1 ONCE)
     Route: 058
     Dates: start: 201709, end: 201709
  2. HUMIRA [Suspect]
     Active Substance: ADALIMUMAB
     Dosage: 40 MG, UNK (FOUR WEEKS AFTER 160 MG DOSE)
     Route: 058
     Dates: start: 201711
  3. HUMIRA [Suspect]
     Active Substance: ADALIMUMAB
     Dosage: 80 MG, UNK (TWO WEEKS AFTER 160 MG DOSE)
     Route: 058
     Dates: start: 2017, end: 2017
  4. LEVOTHYROXINE. [Concomitant]
     Active Substance: LEVOTHYROXINE
     Indication: HYPOTHYROIDISM
     Dosage: UNK
  5. LOMOTIL [Suspect]
     Active Substance: ATROPINE SULFATE\DIPHENOXYLATE HYDROCHLORIDE
     Indication: DIARRHOEA
     Dosage: UNK
     Dates: start: 2017, end: 2017
  6. HUMIRA [Suspect]
     Active Substance: ADALIMUMAB
     Indication: CROHN^S DISEASE
     Dosage: 40 MG, UNK
     Route: 058
     Dates: start: 201709
  7. CAPTOPRIL. [Concomitant]
     Active Substance: CAPTOPRIL
     Indication: CARDIAC DISORDER

REACTIONS (20)
  - Loss of consciousness [Unknown]
  - Terminal state [Unknown]
  - Somnolence [Unknown]
  - Hypotension [Not Recovered/Not Resolved]
  - Crohn^s disease [Not Recovered/Not Resolved]
  - Device related infection [Not Recovered/Not Resolved]
  - Incoherent [Unknown]
  - Yellow skin [Unknown]
  - Hepatic failure [Not Recovered/Not Resolved]
  - Anaemia [Not Recovered/Not Resolved]
  - Diarrhoea [Not Recovered/Not Resolved]
  - Weight fluctuation [Unknown]
  - Respiratory failure [Fatal]
  - Lung infection [Not Recovered/Not Resolved]
  - Medical device site swelling [Unknown]
  - Fluid overload [Unknown]
  - Medical device site discharge [Unknown]
  - Renal failure [Not Recovered/Not Resolved]
  - Bacterial infection [Not Recovered/Not Resolved]
  - Dehydration [Not Recovered/Not Resolved]

NARRATIVE: CASE EVENT DATE: 2017
